FAERS Safety Report 11644106 (Version 1)
Quarter: 2015Q4

REPORT INFORMATION
  Report Type: Spontaneous
  Country: US (occurrence: None)
  Receive Date: 20151019
  Receipt Date: 20151019
  Transmission Date: 20160304
  Serious: Yes (Disabling)
  Sender: FDA-Public Use
  Company Number: None

PATIENT
  Age: 21 Year
  Sex: Female
  Weight: 53.52 kg

DRUGS (2)
  1. FLU SHOT [Concomitant]
     Active Substance: INFLUENZA VIRUS VACCINE
  2. REMICADE [Suspect]
     Active Substance: INFLIXIMAB
     Indication: CROHN^S DISEASE

REACTIONS (1)
  - Embolic stroke [None]

NARRATIVE: CASE EVENT DATE: 20151003
